FAERS Safety Report 8486817 (Version 4)
Quarter: 2012Q4

REPORT INFORMATION
  Report Type: 
  Country: US (occurrence: US)
  Receive Date: 20120402
  Receipt Date: 20121106
  Transmission Date: 20130627
  Serious: Yes (Hospitalization, Other)
  Sender: FDA-Public Use
  Company Number: US-PFIZER INC-2011252973

PATIENT
  Age: 62 Year
  Sex: Female
  Weight: 100 kg

DRUGS (5)
  1. LYRICA [Suspect]
     Indication: FIBROMYALGIA
     Dosage: 100 mg, 3x/day
     Route: 048
     Dates: start: 200802
  2. LYRICA [Suspect]
     Indication: SHINGLES
     Dosage: UNK
     Dates: end: 20121025
  3. CRESTOR [Concomitant]
     Indication: HIGH CHOLESTEROL
     Dosage: 5 mg, daily
  4. SYMBICORT [Concomitant]
     Indication: HIGH CHOLESTEROL
     Dosage: 160/4.5 mcg, 2x/day
  5. WARFARIN SODIUM [Concomitant]
     Indication: ANTICOAGULANT THERAPY
     Dosage: 4 mg, daily
     Dates: end: 201203

REACTIONS (11)
  - Malaise [Unknown]
  - Vomiting [Recovered/Resolved]
  - Nausea [Recovered/Resolved]
  - Blood pressure increased [Unknown]
  - Suicidal ideation [Unknown]
  - Weight increased [Unknown]
  - Road traffic accident [Unknown]
  - Withdrawal syndrome [Unknown]
  - Night sweats [Unknown]
  - Device failure [Unknown]
  - Pain [Unknown]
